FAERS Safety Report 9813671 (Version 1)
Quarter: 2014Q1

REPORT INFORMATION
  Report Type: Spontaneous
  Country: US (occurrence: US)
  Receive Date: 20140113
  Receipt Date: 20140113
  Transmission Date: 20141002
  Serious: Yes (Death)
  Sender: FDA-Public Use
  Company Number: US-PFIZER INC-2014005465

PATIENT
  Age: 36 Year
  Sex: Male

DRUGS (12)
  1. AMLODIPINE BESILATE [Suspect]
     Route: 048
  2. FUROSEMIDE [Suspect]
     Dosage: UNK
     Route: 048
  3. MECLOZINE HCL [Suspect]
     Route: 048
  4. METOPROLOL TARTRATE [Suspect]
     Route: 048
  5. MIDAZOLAM [Suspect]
     Dosage: UNK
     Route: 048
  6. FINASTERIDE [Suspect]
     Route: 048
  7. LOSARTAN [Suspect]
     Route: 048
  8. ISOSORBIDE DINITRATE [Suspect]
     Route: 048
  9. POTASSIUM CHLORIDE [Suspect]
     Route: 048
  10. TAMSULOSIN HYDROCHLORIDE [Suspect]
     Route: 048
  11. TEMAZEPAM [Suspect]
     Route: 048
  12. QUININE [Suspect]
     Route: 048

REACTIONS (3)
  - Completed suicide [Fatal]
  - Cardiac arrest [Fatal]
  - Respiratory arrest [Fatal]
